FAERS Safety Report 7014692-4 (Version None)
Quarter: 2010Q3

REPORT INFORMATION
  Report Type: 
  Country: None (occurrence: None)
  Receive Date: 20100927
  Receipt Date: 20100611
  Transmission Date: 20110219
  Serious: Yes (Death, Hospitalization)
  Sender: FDA-Public Use
  Company Number: ES-ROCHE-728148

PATIENT
  Age: 57 Year
  Sex: Female
  Weight: 60 kg

DRUGS (3)
  1. BEVACIZUMAB [Suspect]
     Indication: NON-SMALL CELL LUNG CANCER
     Dosage: FREQUENCY REPORTED AS 21 DAYS
     Route: 042
     Dates: start: 20081023, end: 20090204
  2. GEMCITABINA [Suspect]
     Indication: NON-SMALL CELL LUNG CANCER
     Dosage: FREQUENCY REPORTED AS 21 DAYS
     Route: 042
     Dates: start: 20081023, end: 20090204
  3. CISPLATIN [Suspect]
     Indication: NON-SMALL CELL LUNG CANCER
     Dosage: FREQUENCY REPORTED AS 21 DAYS
     Route: 042
     Dates: start: 20081023, end: 20090204

REACTIONS (1)
  - DEEP VEIN THROMBOSIS [None]
